FAERS Safety Report 25653331 (Version 1)
Quarter: 2025Q3

REPORT INFORMATION
  Report Type: Spontaneous
  Country: US (occurrence: US)
  Receive Date: 20250807
  Receipt Date: 20250807
  Transmission Date: 20251021
  Serious: Yes (Hospitalization, Other)
  Sender: NOVITIUM PHARMA
  Company Number: US-NOVITIUMPHARMA-2025USNVP01905

PATIENT
  Age: 80 Year
  Sex: Female

DRUGS (2)
  1. DEXAMETHASONE [Suspect]
     Active Substance: DEXAMETHASONE
     Indication: Differentiation syndrome
  2. VENETOCLAX [Concomitant]
     Active Substance: VENETOCLAX
     Indication: Acute myeloid leukaemia

REACTIONS (10)
  - Respiratory failure [Unknown]
  - Unresponsive to stimuli [Unknown]
  - Liver injury [Unknown]
  - Hyperbilirubinaemia [Unknown]
  - Acute kidney injury [Recovering/Resolving]
  - Shock [Recovered/Resolved]
  - Myocardial ischaemia [Unknown]
  - Multiple organ dysfunction syndrome [Unknown]
  - Hypotension [Unknown]
  - Drug withdrawal syndrome [Unknown]
